FAERS Safety Report 11422796 (Version 1)
Quarter: 2015Q3

REPORT INFORMATION
  Report Type: Spontaneous
  Country: CA (occurrence: CA)
  Receive Date: 20150827
  Receipt Date: 20150827
  Transmission Date: 20151125
  Serious: Yes (Other)
  Sender: FDA-Public Use
  Company Number: CA-SA-2015SA106359

PATIENT
  Age: 56 Year
  Sex: Female
  Weight: 59 kg

DRUGS (5)
  1. ADVIL [Concomitant]
     Active Substance: IBUPROFEN
  2. PREMARIN [Concomitant]
     Active Substance: ESTROGENS, CONJUGATED
     Route: 048
  3. FERRLECIT [Suspect]
     Active Substance: SODIUM FERRIC GLUCONATE COMPLEX
     Indication: IRON DEFICIENCY ANAEMIA
     Dosage: INFUSION
     Route: 042
     Dates: start: 20150714, end: 20150714
  4. PARIET [Concomitant]
     Active Substance: RABEPRAZOLE SODIUM
     Route: 048
  5. VITAMIN D [Concomitant]
     Active Substance: CHOLECALCIFEROL
     Dosage: DOSE: 400 UNITS DOSE:400 UNIT(S)
     Route: 048

REACTIONS (9)
  - Blood pressure decreased [Recovering/Resolving]
  - Ill-defined disorder [Recovered/Resolved]
  - Burning sensation [Recovered/Resolved]
  - Urticaria [Recovering/Resolving]
  - Rash [Recovering/Resolving]
  - Peripheral swelling [Recovered/Resolved]
  - Feeling hot [Recovering/Resolving]
  - Pruritus [Recovered/Resolved]
  - Swelling face [Recovering/Resolving]

NARRATIVE: CASE EVENT DATE: 20150714
